FAERS Safety Report 8471848-1 (Version None)
Quarter: 2012Q2

REPORT INFORMATION
  Report Type: 
  Country: None (occurrence: None)
  Receive Date: 20120323
  Receipt Date: 20111003
  Transmission Date: 20120825
  Serious: Yes (Hospitalization)
  Sender: FDA-Public Use
  Company Number: 163-21880-11100271

PATIENT
  Age: 53 Year
  Sex: Female

DRUGS (5)
  1. REVLIMID [Suspect]
     Indication: MULTIPLE MYELOMA
     Dosage: 10 MG, 1 IN 1 D, PO ; 25 MG, X21 DAYS, PO
     Route: 048
     Dates: start: 20090901
  2. REVLIMID [Suspect]
     Indication: MULTIPLE MYELOMA
     Dosage: 10 MG, 1 IN 1 D, PO ; 25 MG, X21 DAYS, PO
     Route: 048
     Dates: start: 20100329
  3. DEXAMETHASONE [Concomitant]
  4. LEVOTHYROXINE SODIUM [Concomitant]
  5. ACYCLOVIR [Concomitant]

REACTIONS (3)
  - PNEUMONIA [None]
  - MUSCLE SPASMS [None]
  - TREMOR [None]
